FAERS Safety Report 8984237 (Version 1)
Quarter: 2012Q4

REPORT INFORMATION
  Report Type: Spontaneous
  Country: IT (occurrence: None)
  Receive Date: 20121217
  Receipt Date: 20121217
  Transmission Date: 20130627
  Serious: Yes (Other)
  Sender: FDA-Public Use
  Company Number: GER/ITL/12/0026959

PATIENT
  Age: 49 Year
  Sex: Female

DRUGS (1)
  1. OLANZAPINE [Suspect]
     Indication: PSYCHOSIS
     Route: 048
     Dates: start: 20110622, end: 20121103

REACTIONS (4)
  - Dysphagia [None]
  - Laryngeal oedema [None]
  - Gastrooesophageal reflux disease [None]
  - Iatrogenic injury [None]
